FAERS Safety Report 10465316 (Version 1)
Quarter: 2014Q3

REPORT INFORMATION
  Report Type: Spontaneous
  Country: US (occurrence: US)
  Receive Date: 20140919
  Receipt Date: 20140919
  Transmission Date: 20150326
  Serious: No
  Sender: FDA-Public Use
  Company Number: US-BAUSCH-BL-2014-005506

PATIENT
  Sex: Female

DRUGS (1)
  1. TROPICAMIDE OPHTHALMIC SOLUTION USP 1% [Suspect]
     Active Substance: TROPICAMIDE
     Indication: PUPIL DILATION PROCEDURE
     Route: 047
     Dates: start: 201405, end: 201405

REACTIONS (1)
  - Drug effect prolonged [Unknown]

NARRATIVE: CASE EVENT DATE: 201405
